FAERS Safety Report 5988753-2 (Version None)
Quarter: 2008Q4

REPORT INFORMATION
  Report Type: 
  Country: None (occurrence: None)
  Receive Date: 20081210
  Receipt Date: 20081202
  Transmission Date: 20090506
  Serious: Yes (Hospitalization)
  Sender: FDA-Public Use
  Company Number: PHEH2008US10749

PATIENT
  Age: 86 Year
  Sex: Male
  Weight: 54.422 kg

DRUGS (5)
  1. EXELON [Suspect]
     Indication: DEMENTIA ALZHEIMER'S TYPE
     Dosage: 9.5 MG, QD
     Route: 062
     Dates: start: 20080101
  2. NORVASC [Concomitant]
  3. METFORMIN HCL [Concomitant]
     Dosage: UNK
  4. PRAVACHOL [Concomitant]
     Dosage: UNK
  5. ASPIRIN [Concomitant]
     Dosage: UNK

REACTIONS (6)
  - DIZZINESS [None]
  - HEART RATE DECREASED [None]
  - NAUSEA [None]
  - ORTHOSTATIC HYPOTENSION [None]
  - SKIN LACERATION [None]
  - SYNCOPE [None]
